FAERS Safety Report 22331024 (Version 1)
Quarter: 2023Q2

REPORT INFORMATION
  Report Type: Spontaneous
  Country: FR (occurrence: FR)
  Receive Date: 20230517
  Receipt Date: 20230517
  Transmission Date: 20230721
  Serious: Yes (Death, Other)
  Sender: FDA-Public Use
  Company Number: FR-STRIDES ARCOLAB LIMITED-2023SP007165

PATIENT
  Age: 28 Year
  Sex: Female

DRUGS (9)
  1. PREDNISOLONE [Suspect]
     Active Substance: PREDNISOLONE
     Indication: Acquired epidermolysis bullosa
     Dosage: 1 MILLIGRAM/KILOGRAM/DAY
     Route: 065
  2. PREDNISOLONE [Suspect]
     Active Substance: PREDNISOLONE
     Indication: Drug reaction with eosinophilia and systemic symptoms
     Dosage: UNK (RESUMPTION)
     Route: 065
  3. CYCLOSPORINE [Suspect]
     Active Substance: CYCLOSPORINE
     Indication: Acquired epidermolysis bullosa
     Dosage: 5 MILLIGRAM/KILOGRAM/DAY
     Route: 065
  4. CYCLOSPORINE [Suspect]
     Active Substance: CYCLOSPORINE
     Indication: Drug reaction with eosinophilia and systemic symptoms
  5. SULFASALAZINE [Suspect]
     Active Substance: SULFASALAZINE
     Indication: Acquired epidermolysis bullosa
     Dosage: UNK
     Route: 065
  6. RITUXIMAB [Suspect]
     Active Substance: RITUXIMAB
     Indication: Acquired epidermolysis bullosa
     Dosage: UNK
     Route: 065
  7. RITUXIMAB [Suspect]
     Active Substance: RITUXIMAB
     Indication: Drug reaction with eosinophilia and systemic symptoms
  8. METHYLPREDNISOLONE [Suspect]
     Active Substance: METHYLPREDNISOLONE
     Indication: Acquired epidermolysis bullosa
     Dosage: UNK
     Route: 065
  9. METHYLPREDNISOLONE [Suspect]
     Active Substance: METHYLPREDNISOLONE
     Indication: Drug reaction with eosinophilia and systemic symptoms

REACTIONS (5)
  - Acute respiratory failure [Fatal]
  - Pneumocystis jirovecii pneumonia [Fatal]
  - Disease recurrence [Unknown]
  - Drug ineffective [Unknown]
  - Off label use [Unknown]
